FAERS Safety Report 23323883 (Version 1)
Quarter: 2023Q4

REPORT INFORMATION
  Report Type: Report from Study
  Country: US (occurrence: US)
  Receive Date: 20231221
  Receipt Date: 20231221
  Transmission Date: 20240109
  Serious: No
  Sender: FDA-Public Use
  Company Number: US-ALXN-A202308067

PATIENT
  Sex: Male

DRUGS (2)
  1. ULTOMIRIS [Suspect]
     Active Substance: RAVULIZUMAB-CWVZ
     Indication: Myasthenia gravis
     Dosage: UNK
     Route: 065
  2. MESTINON [Concomitant]
     Active Substance: PYRIDOSTIGMINE BROMIDE
     Indication: Product used for unknown indication
     Dosage: UNK, Q12H
     Route: 065

REACTIONS (9)
  - Gait disturbance [Unknown]
  - Back disorder [Unknown]
  - Drug ineffective [Unknown]
  - General physical condition abnormal [Unknown]
  - Foaming at mouth [Unknown]
  - Eructation [Unknown]
  - Flatulence [Unknown]
  - Muscular weakness [Unknown]
  - Asthenia [Unknown]
